FAERS Safety Report 9741077 (Version 1)
Quarter: 2013Q4

REPORT INFORMATION
  Report Type: Spontaneous
  Country: US (occurrence: US)
  Receive Date: 20131209
  Receipt Date: 20131209
  Transmission Date: 20140711
  Serious: Yes (Other)
  Sender: FDA-Public Use
  Company Number: US-DYAX CORP.-2013DX000202

PATIENT
  Age: 20 Year
  Sex: Male
  Weight: 92.16 kg

DRUGS (5)
  1. KALBITOR [Suspect]
     Indication: HEREDITARY ANGIOEDEMA
     Route: 058
     Dates: start: 20131122, end: 20131122
  2. KALBITOR [Suspect]
     Route: 058
     Dates: start: 2013, end: 20131122
  3. FLUDROCORTISONE ACETATE [Concomitant]
     Indication: ADRENOGENITAL SYNDROME
     Route: 048
  4. HYDROCORTISONE [Concomitant]
     Indication: PRODUCT USED FOR UNKNOWN INDICATION
     Route: 048
  5. TORADOL [Concomitant]
     Indication: PRODUCT USED FOR UNKNOWN INDICATION
     Route: 030

REACTIONS (2)
  - Hypersensitivity [Recovered/Resolved]
  - Intentional underdose [Unknown]
